FAERS Safety Report 7283577-0 (Version None)
Quarter: 2011Q1

REPORT INFORMATION
  Report Type: 
  Country: None (occurrence: None)
  Receive Date: 20110209
  Receipt Date: 20110202
  Transmission Date: 20110831
  Serious: Yes (Hospitalization)
  Sender: FDA-Public Use
  Company Number: A0901820A

PATIENT
  Age: 58 Year
  Sex: Male
  Weight: 76.4 kg

DRUGS (2)
  1. PAZOPANIB [Suspect]
     Indication: NEOPLASM
     Dosage: 800MG PER DAY
     Route: 048
     Dates: start: 20101102, end: 20101214
  2. IXABEPILONE [Suspect]
     Indication: NEOPLASM
     Dosage: 62MG CYCLIC
     Route: 042
     Dates: start: 20101102, end: 20101220

REACTIONS (2)
  - ATRIAL FIBRILLATION [None]
  - DYSPNOEA [None]
